FAERS Safety Report 8424464-1 (Version None)
Quarter: 2012Q2

REPORT INFORMATION
  Report Type: 
  Country: None (occurrence: None)
  Receive Date: 20120610
  Receipt Date: 20120528
  Transmission Date: 20120825
  Serious: Yes (Life-Threatening, Other)
  Sender: FDA-Public Use
  Company Number: NO-BRISTOL-MYERS SQUIBB COMPANY-16516551

PATIENT
  Age: 14 Year
  Sex: Male

DRUGS (6)
  1. DEPOCYT [Suspect]
     Indication: MEDULLOBLASTOMA
     Dosage: INITIALLY GIVEN EVERY OTHER WEEK,THEN MONTHLY,CUMULATIVE DOSE 650MG,RESATARTED AFTER 18MONTHS
     Route: 037
  2. ETOPOSIDE [Suspect]
     Indication: MEDULLOBLASTOMA
     Dosage: 25 MG/DAY ON ALTERNATE DAYS; MAX 100MG DAILY (50 MG/M2 CUMU DOSE:11.5 G/M2 OVER 31 MONTHS
     Route: 048
  3. CELECOXIB [Suspect]
     Indication: MEDULLOBLASTOMA
     Dosage: ALSO TAKEN 400MG BID 430MG/M2
     Route: 048
  4. THALIDOMIDE [Suspect]
     Indication: MEDULLOBLASTOMA
     Dosage: ALSO TAKEN 50MG 3MG/KG
     Route: 048
  5. PREDNISOLONE HYDROGEN SUCCINATE [Concomitant]
  6. DEXAMETHASONE [Concomitant]

REACTIONS (23)
  - DECREASED APPETITE [None]
  - LISTLESS [None]
  - DYSARTHRIA [None]
  - COORDINATION ABNORMAL [None]
  - METASTASES TO SPINE [None]
  - SOMNOLENCE [None]
  - ARACHNOIDITIS [None]
  - MUCOSAL INFLAMMATION [None]
  - C-REACTIVE PROTEIN [None]
  - HYPOTHYROIDISM [None]
  - NEUROTOXICITY [None]
  - DEAFNESS [None]
  - SINUSITIS [None]
  - MEDULLOBLASTOMA RECURRENT [None]
  - PYREXIA [None]
  - HEADACHE [None]
  - NEUTROPENIA [None]
  - ATAXIA [None]
  - VISUAL IMPAIRMENT [None]
  - CHEST PAIN [None]
  - FATIGUE [None]
  - COGNITIVE DISORDER [None]
  - FALL [None]
